FAERS Safety Report 26104613 (Version 1)
Quarter: 2025Q4

REPORT INFORMATION
  Report Type: Spontaneous
  Country: JP (occurrence: JP)
  Receive Date: 20251130
  Receipt Date: 20251130
  Transmission Date: 20260119
  Serious: Yes (Other)
  Sender: JOHNSON AND JOHNSON
  Company Number: JP-JNJFOC-20250942692

PATIENT
  Age: 8 Decade
  Sex: Female

DRUGS (9)
  1. RYBREVANT [Suspect]
     Active Substance: AMIVANTAMAB-VMJW
     Indication: EGFR gene mutation
     Dosage: C1D1
     Route: 041
     Dates: start: 20250918, end: 20250918
  2. RYBREVANT [Suspect]
     Active Substance: AMIVANTAMAB-VMJW
     Dosage: C1D2
     Route: 041
     Dates: start: 20250919, end: 20250919
  3. RYBREVANT [Suspect]
     Active Substance: AMIVANTAMAB-VMJW
     Dosage: DOSE UNKNOWN
     Route: 041
     Dates: start: 2025, end: 202511
  4. CARBOPLATIN [Suspect]
     Active Substance: CARBOPLATIN
     Indication: EGFR gene mutation
     Dosage: DOSE UNKNOWN
     Route: 041
  5. CARBOPLATIN [Suspect]
     Active Substance: CARBOPLATIN
     Dosage: DOSE UNKNOWN
     Route: 041
     Dates: start: 20250918, end: 202511
  6. PEMETREXED [Suspect]
     Active Substance: PEMETREXED
     Indication: EGFR gene mutation
     Dosage: DOSE UNKNOWN
     Route: 041
  7. PEMETREXED [Suspect]
     Active Substance: PEMETREXED
     Dosage: DOSE UNKNOWN
     Route: 041
     Dates: start: 20250918, end: 202511
  8. SOLU-MEDROL [Concomitant]
     Active Substance: METHYLPREDNISOLONE SODIUM SUCCINATE
     Indication: Product used for unknown indication
     Dosage: DOSE UNKNOWN
     Route: 065
  9. SOLU-MEDROL [Concomitant]
     Active Substance: METHYLPREDNISOLONE SODIUM SUCCINATE
     Dosage: DOSE UNKNOWN
     Route: 065

REACTIONS (3)
  - Embolism venous [Not Recovered/Not Resolved]
  - Infusion related reaction [Recovered/Resolved]
  - Malaise [Recovered/Resolved]

NARRATIVE: CASE EVENT DATE: 20250918
